FAERS Safety Report 17987101 (Version 2)
Quarter: 2020Q3

REPORT INFORMATION
  Report Type: Report from Study
  Country: GB (occurrence: GB)
  Receive Date: 20200707
  Receipt Date: 20200718
  Transmission Date: 20201103
  Serious: Yes (Death, Other)
  Sender: FDA-Public Use
  Company Number: GB-AUROBINDO-AUR-APL-2020-032305

PATIENT
  Age: 26 Year
  Sex: Female

DRUGS (5)
  1. ALEMTUZUMAB [Suspect]
     Active Substance: ALEMTUZUMAB
     Indication: IMMUNOSUPPRESSANT DRUG THERAPY
     Dosage: UNK
     Route: 065
  2. CYCLOPHOSPHAMIDE. [Suspect]
     Active Substance: CYCLOPHOSPHAMIDE
     Indication: IMMUNOSUPPRESSANT DRUG THERAPY
     Dosage: UNK, (HIGH DOSE)
     Route: 065
  3. CYCLOSPORIN [Suspect]
     Active Substance: CYCLOSPORINE
     Indication: PROPHYLAXIS AGAINST GRAFT VERSUS HOST DISEASE
     Dosage: 3 MILLIGRAM/KILOGRAM, ONCE A DAY, (STATING ON DAY 1)
     Route: 042
  4. ACICLOVIR [Suspect]
     Active Substance: ACYCLOVIR
     Indication: ANTIVIRAL PROPHYLAXIS
     Dosage: 400 MILLIGRAM, TWO TIMES A DAY
     Route: 048
  5. FOSCARNET [Suspect]
     Active Substance: FOSCARNET
     Indication: HERPES SIMPLEX
     Dosage: UNK
     Route: 065

REACTIONS (9)
  - Viraemia [Fatal]
  - Herpes simplex [Not Recovered/Not Resolved]
  - Oral disorder [Fatal]
  - Drug resistance [Unknown]
  - Haemorrhage [Unknown]
  - Renal impairment [Unknown]
  - Hepatic failure [Unknown]
  - Haemofiltration [Unknown]
  - Pathogen resistance [Unknown]
